FAERS Safety Report 15284843 (Version 1)
Quarter: 2018Q3

REPORT INFORMATION
  Report Type: Spontaneous
  Country: US (occurrence: US)
  Receive Date: 20180801
  Receipt Date: 20180801
  Transmission Date: 20181010
  Serious: Yes (Other)
  Sender: FDA-Public Use
  Company Number: None

PATIENT
  Age: 53 Year
  Sex: Female
  Weight: 76.5 kg

DRUGS (2)
  1. FLUTICASONE PROPIONATE. [Suspect]
     Active Substance: FLUTICASONE PROPIONATE
     Indication: SINUSITIS
     Dosage: ?          OTHER STRENGTH:120 METERD SPRAYS;QUANTITY:1 SPRAY(S);OTHER ROUTE:SPRAY IN TO NOSE?
  2. FLUTICASONE PROPIONATE. [Suspect]
     Active Substance: FLUTICASONE PROPIONATE
     Indication: SINUSITIS
     Dosage: ?          OTHER STRENGTH:120 METERED SPRAYS;QUANTITY:1 SPRAY IN NOSE;OTHER ROUTE:SPRAYED IN NOSE?

REACTIONS (3)
  - Nasal congestion [None]
  - Product use issue [None]
  - Instillation site haemorrhage [None]

NARRATIVE: CASE EVENT DATE: 20180101
